FAERS Safety Report 14159195 (Version 1)
Quarter: 2017Q4

REPORT INFORMATION
  Report Type: Spontaneous
  Country: GB (occurrence: GB)
  Receive Date: 20171103
  Receipt Date: 20171103
  Transmission Date: 20180321
  Serious: Yes (Congenital Anomaly, Other)
  Sender: FDA-Public Use
  Company Number: GB-ABBVIE-17P-167-2145820-00

PATIENT

DRUGS (1)
  1. VALPROATE SODIUM. [Suspect]
     Active Substance: VALPROATE SODIUM
     Indication: MATERNAL EXPOSURE TIMING UNSPECIFIED
     Route: 064

REACTIONS (6)
  - Autism spectrum disorder [Unknown]
  - Developmental delay [Unknown]
  - Spina bifida [Unknown]
  - Foetal exposure during pregnancy [Unknown]
  - Congenital genital malformation [Unknown]
  - Heart disease congenital [Unknown]
